FAERS Safety Report 6017190-X (Version None)
Quarter: 2008Q4

REPORT INFORMATION
  Report Type: 
  Country: None (occurrence: None)
  Receive Date: 20081223
  Receipt Date: 20081209
  Transmission Date: 20090506
  Serious: Yes (Hospitalization, Other)
  Sender: FDA-Public Use
  Company Number: US-ROCHE-585459

PATIENT
  Sex: Female
  Weight: 49.4 kg

DRUGS (7)
  1. CAPECITABINE [Suspect]
     Indication: COLORECTAL CANCER
     Dosage: THERAPY WAS HELD
     Route: 048
     Dates: start: 20080731
  2. CAPECITABINE [Suspect]
     Route: 048
  3. OXALIPLATIN [Suspect]
     Indication: COLORECTAL CANCER
     Dosage: THERAY WAS HELD
     Route: 042
  4. OXALIPLATIN [Suspect]
     Route: 042
  5. ZOFRAN [Suspect]
     Indication: NAUSEA
     Dosage: STRENGTH REPORTED AS: 32 MG IN 50 ML SALINE
     Route: 042
  6. DECADRON [Concomitant]
     Indication: COLON CANCER
     Route: 042
  7. AVASTIN [Concomitant]
     Indication: COLON CANCER
     Route: 042

REACTIONS (7)
  - COLORECTAL CANCER [None]
  - DEHYDRATION [None]
  - DIPLOPIA [None]
  - DIZZINESS [None]
  - FULL BLOOD COUNT DECREASED [None]
  - HYPOAESTHESIA [None]
  - THROAT TIGHTNESS [None]
